FAERS Safety Report 8646865 (Version 2)
Quarter: 2012Q4

REPORT INFORMATION
  Report Type: 
  Country: US (occurrence: US)
  Receive Date: 20120703
  Receipt Date: 20121026
  Transmission Date: 20130627
  Serious: Yes (Other)
  Sender: FDA-Public Use
  Company Number: US-BAYER-2012-064309

PATIENT
  Age: 18 Year
  Sex: Female
  Weight: 81.63 kg

DRUGS (4)
  1. YAZ [Suspect]
     Indication: CONTRACEPTION
     Dosage: UNK
     Dates: start: 20080718, end: 200907
  2. YAZ [Suspect]
     Indication: ACNE
  3. BENADRYL [Concomitant]
     Indication: MULTIPLE ALLERGIES
     Dosage: 1 pill, daily
  4. IBUPROFEN [Concomitant]
     Indication: PAIN RELIEF

REACTIONS (4)
  - Cholelithiasis [None]
  - Injury [None]
  - Pain [None]
  - Abdominal pain [None]
